FAERS Safety Report 14899823 (Version 1)
Quarter: 2018Q2

REPORT INFORMATION
  Report Type: Spontaneous
  Country: US (occurrence: US)
  Receive Date: 20180516
  Receipt Date: 20180516
  Transmission Date: 20180711
  Serious: Yes (Hospitalization, Other)
  Sender: FDA-Public Use
  Company Number: US-SUN PHARMACEUTICAL INDUSTRIES LTD-2018US-172887

PATIENT
  Age: 48 Year
  Sex: Male

DRUGS (6)
  1. ISOPROTERENOL. [Suspect]
     Active Substance: ISOPROTERENOL
     Indication: VENTRICULAR TACHYCARDIA
     Dosage: MAXIMAL DOSAGE
     Route: 065
  2. ISOPROTERENOL. [Suspect]
     Active Substance: ISOPROTERENOL
     Indication: VENTRICULAR FAILURE
  3. QUINIDINE [Suspect]
     Active Substance: QUINIDINE
     Indication: VENTRICULAR FIBRILLATION
  4. AMIODARONE [Suspect]
     Active Substance: AMIODARONE
     Indication: VENTRICULAR FAILURE
  5. QUINIDINE [Suspect]
     Active Substance: QUINIDINE
     Indication: VENTRICULAR TACHYCARDIA
     Dosage: MAXIMAL DOSAGE
     Route: 065
  6. AMIODARONE [Suspect]
     Active Substance: AMIODARONE
     Indication: VENTRICULAR TACHYCARDIA
     Dosage: MAXIMAL DOSAGE
     Route: 065

REACTIONS (1)
  - Drug ineffective [Unknown]
